FAERS Safety Report 21294423 (Version 14)
Quarter: 2025Q1

REPORT INFORMATION
  Report Type: Report from Study
  Country: US (occurrence: US)
  Receive Date: 20220905
  Receipt Date: 20250117
  Transmission Date: 20250408
  Serious: No
  Sender: TAKEDA
  Company Number: US-TAKEDA-2022TUS060669

PATIENT
  Age: 63 Year
  Sex: Male

DRUGS (6)
  1. MARIBAVIR [Suspect]
     Active Substance: MARIBAVIR
     Indication: Cytomegalovirus infection
     Dosage: 200 MILLIGRAM, BID
  2. MARIBAVIR [Suspect]
     Active Substance: MARIBAVIR
     Dosage: 400 MILLIGRAM, BID
     Dates: start: 20220831
  3. MARIBAVIR [Suspect]
     Active Substance: MARIBAVIR
     Dosage: 400 MILLIGRAM, BID
     Dates: start: 20220901
  4. MARIBAVIR [Suspect]
     Active Substance: MARIBAVIR
     Dosage: 400 MILLIGRAM, BID
     Dates: start: 20230429
  5. PREDNISONE [Concomitant]
     Active Substance: PREDNISONE
     Indication: Renal transplant
  6. BELATACEPT [Concomitant]
     Active Substance: BELATACEPT
     Indication: Renal transplant

REACTIONS (7)
  - Dysgeusia [Unknown]
  - Eye disorder [Unknown]
  - Viral load increased [Unknown]
  - Cardiac disorder [Unknown]
  - Insurance issue [Unknown]
  - Cytomegalovirus test negative [Unknown]
  - Influenza [Unknown]

NARRATIVE: CASE EVENT DATE: 20220901
